FAERS Safety Report 17930319 (Version 1)
Quarter: 2020Q2

REPORT INFORMATION
  Report Type: Report from Study
  Country: US (occurrence: US)
  Receive Date: 20200623
  Receipt Date: 20200623
  Transmission Date: 20200714
  Serious: Yes (Death, Other)
  Sender: FDA-Public Use
  Company Number: US-ASTRAZENECA-2020SE76969

PATIENT
  Age: 81 Year
  Sex: Female
  Weight: 54.9 kg

DRUGS (9)
  1. CALQUENCE [Suspect]
     Active Substance: ACALABRUTINIB
     Indication: CHRONIC LYMPHOCYTIC LEUKAEMIA
     Route: 048
     Dates: start: 20200516, end: 20200612
  2. METOPROLOL TARTRATE. [Suspect]
     Active Substance: METOPROLOL TARTRATE
     Route: 065
  3. BACTRIM DS [Concomitant]
     Active Substance: SULFAMETHOXAZOLE\TRIMETHOPRIM
     Dosage: 800/160MG
     Route: 065
  4. ACYCLOVIR. [Concomitant]
     Active Substance: ACYCLOVIR
     Route: 065
  5. LEVOTHYROXINE. [Concomitant]
     Active Substance: LEVOTHYROXINE
     Route: 065
  6. ALLOPURINOL. [Concomitant]
     Active Substance: ALLOPURINOL
     Route: 065
  7. AZILECT [Concomitant]
     Active Substance: RASAGILINE MESYLATE
     Route: 065
  8. AZITHROMYCIN ANHYDROUS. [Concomitant]
     Active Substance: AZITHROMYCIN ANHYDROUS
     Route: 065
  9. PRAMIPEXOLE. [Concomitant]
     Active Substance: PRAMIPEXOLE
     Route: 065

REACTIONS (2)
  - Chronic lymphocytic leukaemia [Unknown]
  - Death [Fatal]

NARRATIVE: CASE EVENT DATE: 20200612
